FAERS Safety Report 26069490 (Version 1)
Quarter: 2025Q4

REPORT INFORMATION
  Report Type: Spontaneous
  Country: US (occurrence: US)
  Receive Date: 20251120
  Receipt Date: 20251120
  Transmission Date: 20260118
  Serious: Yes (Other)
  Sender: RANBAXY
  Company Number: US-SUN PHARMACEUTICAL INDUSTRIES INC-2025R1-537248

PATIENT
  Age: 77 Year
  Sex: Male

DRUGS (1)
  1. METHADONE [Suspect]
     Active Substance: METHADONE HYDROCHLORIDE
     Indication: Product used for unknown indication
     Dosage: 5 MILLIGRAM, 42 TABLETS
     Route: 048

REACTIONS (7)
  - Overdose [Unknown]
  - Somnolence [Recovered/Resolved]
  - Bradypnoea [Recovered/Resolved]
  - Accidental exposure to product [Unknown]
  - Miosis [Recovered/Resolved]
  - Confusional state [Recovered/Resolved]
  - Hypertonia [Recovered/Resolved]
